FAERS Safety Report 24346415 (Version 1)
Quarter: 2024Q3

REPORT INFORMATION
  Report Type: Spontaneous
  Country: US (occurrence: US)
  Receive Date: 20240921
  Receipt Date: 20240921
  Transmission Date: 20241017
  Serious: No
  Sender: SANOFI AVENTIS
  Company Number: US-SA-2024SA269660

PATIENT
  Age: 3 Year
  Sex: Male

DRUGS (1)
  1. DUPIXENT [Suspect]
     Active Substance: DUPILUMAB
     Indication: Eczema
     Dosage: 200 MG, Q4W
     Route: 058
     Dates: start: 202408

REACTIONS (5)
  - Rhinorrhoea [Unknown]
  - Nasopharyngitis [Unknown]
  - Pruritus [Unknown]
  - Eczema [Unknown]
  - Eczema [Unknown]

NARRATIVE: CASE EVENT DATE: 20240904
